FAERS Safety Report 6668070-8 (Version None)
Quarter: 2010Q2

REPORT INFORMATION
  Report Type: 
  Country: None (occurrence: None)
  Receive Date: 20100405
  Receipt Date: 20100329
  Transmission Date: 20101027
  Serious: Yes (Other)
  Sender: FDA-Public Use
  Company Number: US-GILEAD-2010-0028196

PATIENT
  Age: 29 Year
  Sex: Female

DRUGS (3)
  1. ATRIPLA [Suspect]
     Indication: HIV INFECTION
     Route: 048
     Dates: end: 20100308
  2. COMBIVIR [Concomitant]
     Indication: HIV INFECTION
     Dates: start: 20100308, end: 20100322
  3. VIRACEPT [Concomitant]
     Indication: HIV INFECTION
     Dates: start: 20100308, end: 20100322

REACTIONS (1)
  - ABORTION SPONTANEOUS [None]
